FAERS Safety Report 23214360 (Version 1)
Quarter: 2023Q4

REPORT INFORMATION
  Report Type: Report from Study
  Country: CA (occurrence: CA)
  Receive Date: 20231121
  Receipt Date: 20231121
  Transmission Date: 20240110
  Serious: Yes (Death, Other)
  Sender: FDA-Public Use
  Company Number: CA-Ipsen Biopharmaceuticals, Inc.-2023-26142

PATIENT
  Age: 65 Year
  Sex: Male

DRUGS (10)
  1. LANREOTIDE ACETATE [Suspect]
     Active Substance: LANREOTIDE ACETATE
     Indication: Carcinoid syndrome
     Route: 058
     Dates: start: 20200311
  2. PERINDOPRIL [Concomitant]
     Active Substance: PERINDOPRIL
  3. ROSUVASTATIN [Concomitant]
     Active Substance: ROSUVASTATIN
  4. SPIRONOLACTONE [Concomitant]
     Active Substance: SPIRONOLACTONE
  5. BISOPROLOL [Concomitant]
     Active Substance: BISOPROLOL\BISOPROLOL FUMARATE
  6. SOTALOL [Concomitant]
     Active Substance: SOTALOL
  7. COUMADIN [Concomitant]
     Active Substance: WARFARIN SODIUM
  8. LANTUS [Concomitant]
     Active Substance: INSULIN GLARGINE
  9. HUMALOG [Concomitant]
     Active Substance: INSULIN LISPRO
  10. COTAZYM ENZYME [Concomitant]

REACTIONS (1)
  - Death [Fatal]
